FAERS Safety Report 16426873 (Version 1)
Quarter: 2019Q2

REPORT INFORMATION
  Report Type: Spontaneous
  Country: US (occurrence: US)
  Receive Date: 20190612
  Receipt Date: 20190612
  Transmission Date: 20190711
  Serious: No
  Sender: FDA-Public Use
  Company Number: None

PATIENT
  Age: 58 Year
  Sex: Male
  Weight: 71.1 kg

DRUGS (15)
  1. FERROUS SULFATE 325 MG [Concomitant]
  2. PREGABALIN 25 MG [Concomitant]
     Active Substance: PREGABALIN
  3. MIRTAZAPINE 15 MG [Concomitant]
     Active Substance: MIRTAZAPINE
  4. RIVAROXABAN 15 MG [Concomitant]
     Active Substance: RIVAROXABAN
  5. SULFAMETHOXAZOLE/ TRIMETHOPRIM [Suspect]
     Active Substance: SULFAMETHOXAZOLE\TRIMETHOPRIM
     Indication: PNEUMOCYSTIS JIROVECII PNEUMONIA
     Route: 048
     Dates: start: 20190509, end: 20190607
  6. ASPIRIN 81 MG [Concomitant]
     Active Substance: ASPIRIN
  7. ATORVASTATIN 80 MG [Concomitant]
     Active Substance: ATORVASTATIN
  8. AZITHROMYCIN 600 MG [Concomitant]
     Active Substance: AZITHROMYCIN ANHYDROUS
  9. INSULIN GLARGINE [Concomitant]
     Active Substance: INSULIN GLARGINE
  10. PANTOPRAZOLE 40 MG [Concomitant]
     Active Substance: PANTOPRAZOLE SODIUM
  11. PREDNISONE 40 MG [Concomitant]
     Active Substance: PREDNISONE
  12. INSULIN ASPART [Concomitant]
     Active Substance: INSULIN ASPART
  13. LAMOTRIGINE 200 MG [Concomitant]
     Active Substance: LAMOTRIGINE
  14. BIKTARVY [Concomitant]
     Active Substance: BICTEGRAVIR SODIUM\EMTRICITABINE\TENOFOVIR ALAFENAMIDE FUMARATE
  15. MELATONIN 3 MG [Concomitant]

REACTIONS (1)
  - Blood potassium increased [None]

NARRATIVE: CASE EVENT DATE: 20190606
